FAERS Safety Report 5897455-2 (Version None)
Quarter: 2008Q3

REPORT INFORMATION
  Report Type: 
  Country: None (occurrence: None)
  Receive Date: 20080917
  Receipt Date: 20070820
  Transmission Date: 20090109
  Serious: Yes (Other)
  Sender: FDA-Public Use
  Company Number: PHEH2007US11309

PATIENT
  Age: 49 Year
  Sex: Female
  Weight: 51.2 kg

DRUGS (1)
  1. FEMARA [Suspect]
     Indication: BREAST CANCER STAGE I
     Dosage: 2.5 MG, QD, ORAL
     Route: 048
     Dates: start: 20061001

REACTIONS (8)
  - ACTIVITIES OF DAILY LIVING IMPAIRED [None]
  - ARTHRALGIA [None]
  - DEPRESSED LEVEL OF CONSCIOUSNESS [None]
  - FATIGUE [None]
  - MYALGIA [None]
  - PAIN [None]
  - SEXUAL DYSFUNCTION [None]
  - SOMNOLENCE [None]
